FAERS Safety Report 4995033-0 (Version None)
Quarter: 2006Q2

REPORT INFORMATION
  Report Type: 
  Country: None (occurrence: None)
  Receive Date: 20060508
  Receipt Date: 20060425
  Transmission Date: 20061013
  Serious: Yes (Hospitalization)
  Sender: FDA-Public Use
  Company Number: JP-JPN-A200601362

PATIENT
  Age: 49 Year
  Sex: Male

DRUGS (8)
  1. VALTREX [Suspect]
     Indication: HERPES ZOSTER
     Dosage: 1000MG THREE TIMES PER DAY
     Route: 048
     Dates: start: 20060424, end: 20060426
  2. LOXONIN [Suspect]
     Indication: DRUG USE FOR UNKNOWN INDICATION
     Route: 048
  3. MUCOSTA [Concomitant]
     Route: 048
  4. VOLTAREN [Concomitant]
     Route: 054
  5. VITAMEDIN [Concomitant]
     Route: 065
  6. ISOTONIC SODIUM CHLORIDE SOLUTION [Concomitant]
     Route: 042
  7. NEO-MINOPHAGEN-C [Concomitant]
     Route: 042
  8. NEUROTROPIN [Concomitant]
     Route: 042

REACTIONS (1)
  - PAIN [None]
